FAERS Safety Report 12091828 (Version 3)
Quarter: 2016Q2

REPORT INFORMATION
  Report Type: Spontaneous
  Country: US (occurrence: US)
  Receive Date: 20160218
  Receipt Date: 20160502
  Transmission Date: 20160815
  Serious: Yes (Life-Threatening, Hospitalization)
  Sender: FDA-Public Use
  Company Number: US-ROCHE-1712339

PATIENT
  Age: 40 Year
  Sex: Female
  Weight: 72.64 kg

DRUGS (4)
  1. ZYRTEC [Concomitant]
     Active Substance: CETIRIZINE HYDROCHLORIDE
     Indication: URTICARIA
     Dosage: 10-20 MG?ONCE A DAY-TWICE A DAY
     Route: 048
     Dates: start: 201412
  2. XOLAIR [Suspect]
     Active Substance: OMALIZUMAB
     Indication: CHRONIC SPONTANEOUS URTICARIA
     Route: 058
     Dates: start: 20151005, end: 20160208
  3. RANITIDINE. [Concomitant]
     Active Substance: RANITIDINE
     Indication: URTICARIA
     Route: 048
     Dates: start: 201501, end: 20160212
  4. AMLODIPINE [Concomitant]
     Active Substance: AMLODIPINE BESYLATE
     Indication: HYPERTENSION
     Dosage: 2.5-5 MG
     Route: 048
     Dates: start: 20150130

REACTIONS (1)
  - Malignant hypertension [Recovered/Resolved]

NARRATIVE: CASE EVENT DATE: 20160211
